FAERS Safety Report 8912698 (Version 1)
Quarter: 2012Q4

REPORT INFORMATION
  Report Type: Report from Study
  Country: GB (occurrence: GB)
  Receive Date: 20121116
  Receipt Date: 20121116
  Transmission Date: 20130627
  Serious: Yes (Hospitalization)
  Sender: FDA-Public Use
  Company Number: GB-PFIZER INC-2012258503

PATIENT
  Age: 70 Year
  Sex: Male
  Weight: 96.6 kg

DRUGS (14)
  1. VARENICLINE TARTRATE [Suspect]
     Indication: SMOKING CESSATION THERAPY
     Dosage: 0.5 mg, 1x/day
     Dates: start: 20121009, end: 20121011
  2. VARENICLINE TARTRATE [Suspect]
     Dosage: 0.5 mg, 2x/day
     Dates: start: 20121012, end: 20121015
  3. BLINDED NO SUBJECT DRUG [Suspect]
     Indication: SMOKING CESSATION THERAPY
     Dosage: UNK
  4. BLINDED PLACEBO [Suspect]
     Indication: SMOKING CESSATION THERAPY
     Dosage: UNK
  5. BLINDED PLACEBO [Suspect]
     Indication: SMOKING CESSATION THERAPY
     Dosage: UNK
  6. VARENICLINE TARTRATE [Suspect]
     Indication: SMOKING CESSATION THERAPY
     Dosage: UNK
  7. VARENICLINE TARTRATE [Suspect]
     Indication: SMOKING CESSATION THERAPY
     Dosage: UNK
  8. SIMVASTATIN [Concomitant]
     Indication: ISCHAEMIC HEART DISEASE
     Dosage: UNK
     Route: 048
  9. ACETYLSALICYLIC ACID [Concomitant]
     Indication: ISCHAEMIC HEART DISEASE
     Dosage: UNK
     Route: 048
  10. RAMIPRIL [Concomitant]
     Indication: ISCHAEMIC HEART DISEASE
     Dosage: UNK
     Route: 048
  11. BISOPROLOL [Concomitant]
     Indication: ISCHAEMIC HEART DISEASE
     Dosage: UNK
     Route: 048
  12. CLOPIDOGREL [Concomitant]
     Indication: ISCHAEMIC HEART DISEASE
     Dosage: UNK
     Route: 048
  13. ZOPICLONE [Concomitant]
     Indication: SLEEP PROBLEM
     Dosage: UNK
     Route: 048
  14. LANSOPRAZOLE [Concomitant]
     Dosage: UNK
     Route: 048

REACTIONS (2)
  - Lower respiratory tract infection [Recovering/Resolving]
  - Pulmonary congestion [Recovering/Resolving]
